FAERS Safety Report 8600826-4 (Version None)
Quarter: 2012Q3

REPORT INFORMATION
  Report Type: 
  Country: None (occurrence: None)
  Receive Date: 20120817
  Receipt Date: 20120810
  Transmission Date: 20120928
  Serious: Yes (Death)
  Sender: FDA-Public Use
  Company Number: US-JNJFOC-2010018448

PATIENT
  Sex: Male
  Weight: 83.9 kg

DRUGS (2)
  1. PSEUDOEPHEDRINE HCL [Suspect]
     Route: 048
  2. PSEUDOEPHEDRINE HCL [Suspect]
     Indication: NASAL CONGESTION
     Dosage: DAILY DOSE TEXT: 3 SINGLE DOSE TREATMENTS
     Route: 048
     Dates: start: 20100710, end: 20100724

REACTIONS (1)
  - DEATH [None]
